FAERS Safety Report 18717681 (Version 1)
Quarter: 2021Q1

REPORT INFORMATION
  Report Type: Spontaneous
  Country: JP (occurrence: JP)
  Receive Date: 20210108
  Receipt Date: 20210108
  Transmission Date: 20210419
  Serious: Yes (Other)
  Sender: FDA-Public Use
  Company Number: JP-PFIZER INC-2021001554

PATIENT
  Age: 73 Year
  Sex: Male

DRUGS (3)
  1. JZOLOFT 25MG [Suspect]
     Active Substance: SERTRALINE HYDROCHLORIDE
     Dosage: 100 MG (4 TABLETS)
     Route: 048
  2. JZOLOFT 25MG [Suspect]
     Active Substance: SERTRALINE HYDROCHLORIDE
     Dosage: 2 DF
  3. JZOLOFT 25MG [Suspect]
     Active Substance: SERTRALINE HYDROCHLORIDE
     Dosage: 1 DF

REACTIONS (3)
  - Oropharyngeal pain [Unknown]
  - Treatment noncompliance [Unknown]
  - Foreign body in throat [Unknown]
